FAERS Safety Report 7327409-0 (Version None)
Quarter: 2011Q1

REPORT INFORMATION
  Report Type: 
  Country: None (occurrence: None)
  Receive Date: 20110303
  Receipt Date: 20110222
  Transmission Date: 20110831
  Serious: Yes (Other)
  Sender: FDA-Public Use
  Company Number: PL-AMGEN-POLSP2011011122

PATIENT
  Age: 56 Year
  Sex: Female
  Weight: 61 kg

DRUGS (4)
  1. ENBREL [Suspect]
     Indication: PRODUCT USED FOR UNKNOWN INDICATION
     Dosage: 50 MG, WEEKLY
     Route: 058
     Dates: start: 20100601, end: 20101220
  2. IPP [Concomitant]
     Dosage: UNK
  3. OLFEN                              /00372301/ [Concomitant]
     Dosage: UNK
  4. ENCORTON                           /00044701/ [Concomitant]
     Dosage: UNK

REACTIONS (2)
  - FACE OEDEMA [None]
  - RASH MACULO-PAPULAR [None]
